FAERS Safety Report 19110814 (Version 16)
Quarter: 2025Q1

REPORT INFORMATION
  Report Type: Spontaneous
  Country: US (occurrence: US)
  Receive Date: 20210408
  Receipt Date: 20250123
  Transmission Date: 20250408
  Serious: Yes (Other)
  Sender: PFIZER
  Company Number: US-PFIZER INC-2021081051

PATIENT
  Age: 68 Year
  Sex: Female

DRUGS (8)
  1. IBRANCE [Suspect]
     Active Substance: PALBOCICLIB
     Indication: Breast cancer metastatic
     Dates: start: 2020
  2. IBRANCE [Suspect]
     Active Substance: PALBOCICLIB
     Dates: start: 20220125
  3. IBRANCE [Suspect]
     Active Substance: PALBOCICLIB
     Dates: start: 20221213
  4. IBRANCE [Suspect]
     Active Substance: PALBOCICLIB
     Route: 048
  5. IBRANCE [Suspect]
     Active Substance: PALBOCICLIB
     Dates: start: 20230725
  6. IBRANCE [Suspect]
     Active Substance: PALBOCICLIB
     Route: 048
  7. IBRANCE [Suspect]
     Active Substance: PALBOCICLIB
     Route: 048
  8. VITAMIN D NOS [Concomitant]
     Active Substance: CHOLECALCIFEROL\ERGOCALCIFEROL
     Dosage: UNK, WEEKLY

REACTIONS (24)
  - Pulmonary congestion [Unknown]
  - Diverticulitis [Unknown]
  - Intentional dose omission [Unknown]
  - Pruritus [Unknown]
  - Dry skin [Unknown]
  - Memory impairment [Unknown]
  - Hot flush [Not Recovered/Not Resolved]
  - Hyperhidrosis [Unknown]
  - Lymphoedema [Unknown]
  - Fatigue [Unknown]
  - Asthenia [Unknown]
  - Depressed mood [Unknown]
  - Bone pain [Unknown]
  - Pain in extremity [Unknown]
  - Stress [Unknown]
  - Malaise [Unknown]
  - Weight increased [Unknown]
  - Hunger [Unknown]
  - Insomnia [Unknown]
  - Anxiety [Unknown]
  - Nasopharyngitis [Unknown]
  - Neoplasm progression [Unknown]
  - Sluggishness [Unknown]
  - Cough [Unknown]
